FAERS Safety Report 5699710-8 (Version None)
Quarter: 2008Q2

REPORT INFORMATION
  Report Type: 
  Country: None (occurrence: None)
  Receive Date: 20080410
  Receipt Date: 20080328
  Transmission Date: 20081010
  Serious: Yes (Hospitalization)
  Sender: FDA-Public Use
  Company Number: PHHO2008DE02355

PATIENT
  Age: 50 Year
  Sex: Male
  Weight: 77 kg

DRUGS (5)
  1. MYFORTIC [Suspect]
     Indication: RENAL TRANSPLANT
     Dosage: 1440 MG, BID
     Route: 048
     Dates: start: 20080118
  2. NEORAL [Suspect]
     Indication: RENAL TRANSPLANT
     Dosage: 425 MG, BID
     Route: 048
  3. NEORAL [Suspect]
     Dosage: 300 MG, BID
     Route: 048
     Dates: start: 20080118
  4. PREDNISOLONE [Suspect]
     Indication: RENAL TRANSPLANT
     Dosage: 20 MG, QD
     Route: 048
  5. CERTICAN [Suspect]
     Dosage: NO TREATMENT

REACTIONS (4)
  - CYST DRAINAGE [None]
  - LYMPHOCELE [None]
  - SEROMA [None]
  - THERAPEUTIC PROCEDURE [None]
